FAERS Safety Report 7911071-X (Version None)
Quarter: 2011Q4

REPORT INFORMATION
  Report Type: 
  Country: None (occurrence: None)
  Receive Date: 20111114
  Receipt Date: 20111107
  Transmission Date: 20120403
  Serious: No
  Sender: FDA-Public Use
  Company Number: US-BIOGENIDEC-2011BI042795

PATIENT
  Age: 37 Year
  Sex: Female

DRUGS (2)
  1. AVONEX [Suspect]
     Indication: MULTIPLE SCLEROSIS
     Route: 030
     Dates: start: 20111031
  2. AVONEX [Suspect]
     Route: 030

REACTIONS (8)
  - FEELING OF BODY TEMPERATURE CHANGE [None]
  - LIP PRURITUS [None]
  - INJECTION SITE SWELLING [None]
  - HYPOAESTHESIA ORAL [None]
  - INJECTION SITE PAIN [None]
  - INFLUENZA LIKE ILLNESS [None]
  - INSOMNIA [None]
  - PARAESTHESIA ORAL [None]
